FAERS Safety Report 10341312 (Version 4)
Quarter: 2014Q4

REPORT INFORMATION
  Report Type: Spontaneous
  Country: JP (occurrence: JP)
  Receive Date: 20140725
  Receipt Date: 20141009
  Transmission Date: 20150528
  Serious: Yes (Other)
  Sender: FDA-Public Use
  Company Number: JP-UCBSA-2014004152

PATIENT
  Age: 48 Year
  Sex: Male

DRUGS (13)
  1. SODIUM VALPROATE [Concomitant]
     Active Substance: VALPROATE SODIUM
     Dosage: 1600 MG
     Route: 048
     Dates: start: 20041011
  2. DIAMOX SEQUELS [Concomitant]
     Active Substance: ACETAZOLAMIDE
     Dosage: 250 MG
     Route: 048
     Dates: start: 20070803
  3. PHENOBAL [Concomitant]
     Active Substance: PHENOBARBITAL
     Dosage: 75MG
     Route: 048
     Dates: start: 20140507
  4. GABAPEN [Concomitant]
     Active Substance: GABAPENTIN
     Dosage: 600 MG
     Route: 048
     Dates: start: 20140523
  5. KEPPRA [Suspect]
     Active Substance: LEVETIRACETAM
     Indication: EPILEPSY
     Dosage: 500 MG, ONCE DAILY (QD)
     Route: 048
     Dates: start: 20140430, end: 20140430
  6. KEPPRA [Suspect]
     Active Substance: LEVETIRACETAM
     Dosage: 1000 MG, ONCE DAILY (QD)
     Route: 048
     Dates: start: 20140501, end: 20140506
  7. PHENOBAL [Concomitant]
     Active Substance: PHENOBARBITAL
     Dosage: 120 MG
     Dates: end: 20140206
  8. PHENOBAL [Concomitant]
     Active Substance: PHENOBARBITAL
     Dosage: 105 MG
     Route: 048
     Dates: start: 20140206, end: 20140506
  9. CARBAMAZEPINE. [Concomitant]
     Active Substance: CARBAMAZEPINE
     Dosage: 600 MG
     Route: 048
     Dates: start: 20060526, end: 20140205
  10. GABAPEN [Concomitant]
     Active Substance: GABAPENTIN
     Dosage: 1200 MG
     Dates: start: 20130626, end: 20140522
  11. CARBAMAZEPINE. [Concomitant]
     Active Substance: CARBAMAZEPINE
     Dosage: 700 MG
     Dates: start: 20140206
  12. GASDOCK [Concomitant]
     Active Substance: FAMOTIDINE
     Dosage: 40 MG
     Route: 048
     Dates: start: 20120326
  13. EDIROL [Suspect]
     Active Substance: ELDECALCITOL
     Dosage: 0.75 ?G
     Route: 048
     Dates: start: 20131119, end: 20140507

REACTIONS (4)
  - Blood calcium increased [Recovered/Resolved]
  - Blood folate decreased [Recovered/Resolved]
  - Anticonvulsant drug level increased [Recovered/Resolved]
  - Renal impairment [Recovered/Resolved]

NARRATIVE: CASE EVENT DATE: 20140507
